FAERS Safety Report 7506459-5 (Version None)
Quarter: 2011Q2

REPORT INFORMATION
  Report Type: 
  Country: None (occurrence: None)
  Receive Date: 20110526
  Receipt Date: 20110420
  Transmission Date: 20111010
  Serious: Yes (Hospitalization, Other)
  Sender: FDA-Public Use
  Company Number: US-BAYER-201030367NA

PATIENT
  Age: 25 Year
  Sex: Female
  Weight: 91 kg

DRUGS (11)
  1. AMOXICILLIN [Concomitant]
     Dosage: 500 MG, UNK
     Dates: start: 20080411
  2. PROMETHAZINE [Concomitant]
     Dosage: 25 MG, UNK
     Dates: start: 20080724
  3. LORAZEPAM [Concomitant]
     Dosage: 1 MG, UNK
  4. RANITIDINE [Concomitant]
     Dosage: 150 MG, UNK
     Dates: start: 20081009
  5. YAZ [Suspect]
     Indication: PRODUCT USED FOR UNKNOWN INDICATION
     Route: 048
     Dates: start: 20070101
  6. ALPRAZOLAM [Concomitant]
     Dosage: 0.5 MG, UNK
  7. ACETAMINOPHEN W/ PROPOXYPHENE HCL [Concomitant]
     Dosage: UNK
     Dates: start: 20080723
  8. ZYRTEC [Concomitant]
  9. THYROID TAB [Concomitant]
     Dosage: 30 MG, UNK
  10. ACETAMINOPHEN AND HYDROCODONE BITARTRATE [Concomitant]
     Dosage: UNK
     Dates: start: 20080411
  11. ADIPEX-P [Concomitant]

REACTIONS (10)
  - GASTROINTESTINAL DISORDER POSTOPERATIVE [None]
  - NAUSEA [None]
  - PYREXIA [None]
  - ABDOMINAL PAIN [None]
  - FLATULENCE [None]
  - CHOLECYSTITIS CHRONIC [None]
  - ABDOMINAL PAIN UPPER [None]
  - GALLBLADDER INJURY [None]
  - VOMITING [None]
  - FOOD INTOLERANCE [None]
